FAERS Safety Report 19818003 (Version 2)
Quarter: 2021Q4

REPORT INFORMATION
  Report Type: Spontaneous
  Country: SI (occurrence: SI)
  Receive Date: 20210910
  Receipt Date: 20211005
  Transmission Date: 20220303
  Serious: Yes (Hospitalization, Other)
  Sender: FDA-Public Use
  Company Number: SI-BAXTER-2021BAX028556

PATIENT
  Age: 62 Year
  Sex: Female

DRUGS (5)
  1. DOXORUBICIN HYDROCHLORIDE [Suspect]
     Active Substance: DOXORUBICIN HYDROCHLORIDE
     Indication: Diffuse large B-cell lymphoma
     Dosage: R-CHOP (8 CYCLICAL)
     Route: 065
     Dates: start: 201301, end: 201308
  2. CYCLOPHOSPHAMIDE [Suspect]
     Active Substance: CYCLOPHOSPHAMIDE
     Indication: Diffuse large B-cell lymphoma
     Dosage: R-CHOP (8 CYCLICAL)
     Route: 065
     Dates: start: 201301, end: 201308
  3. RITUXIMAB [Suspect]
     Active Substance: RITUXIMAB
     Indication: Diffuse large B-cell lymphoma
     Dosage: R-CHOP (8 CYCLICAL)
     Route: 065
     Dates: start: 201301, end: 201308
  4. VINCRISTINE [Suspect]
     Active Substance: VINCRISTINE
     Indication: Diffuse large B-cell lymphoma
     Dosage: R-CHOP (8 CYCLICAL)
     Route: 065
     Dates: start: 201301, end: 201308
  5. PREDNISOLONE [Suspect]
     Active Substance: PREDNISOLONE
     Indication: Diffuse large B-cell lymphoma
     Dosage: R-CHOP (8 CYCLICAL)
     Route: 065
     Dates: start: 201301, end: 201308

REACTIONS (7)
  - Febrile neutropenia [Recovered/Resolved]
  - Cerebral toxoplasmosis [Recovering/Resolving]
  - Cardiac failure acute [Unknown]
  - Cardiomyopathy [Unknown]
  - Escherichia urinary tract infection [Recovered/Resolved]
  - Neutropenia [Recovered/Resolved]
  - Deep vein thrombosis [Unknown]

NARRATIVE: CASE EVENT DATE: 20130101
